FAERS Safety Report 15287337 (Version 2)
Quarter: 2018Q3

REPORT INFORMATION
  Report Type: Report from Study
  Country: US (occurrence: US)
  Receive Date: 20180817
  Receipt Date: 20180910
  Transmission Date: 20181010
  Serious: Yes (Hospitalization)
  Sender: FDA-Public Use
  Company Number: US-ACADIA PHARMACEUTICALS INC.-ACA-2018-009860

PATIENT
  Age: 66 Year
  Sex: Male

DRUGS (4)
  1. NUPLAZID [Suspect]
     Active Substance: PIMAVANSERIN TARTRATE
     Indication: HALLUCINATION
     Dosage: 17 MG, QD
     Route: 065
     Dates: start: 201808
  2. NUPLAZID [Suspect]
     Active Substance: PIMAVANSERIN TARTRATE
     Dosage: UNK
     Route: 065
  3. NUPLAZID [Suspect]
     Active Substance: PIMAVANSERIN TARTRATE
     Indication: DELUSION
     Dosage: 34 MG, BID
     Route: 065
     Dates: start: 20180803
  4. NUPLAZID [Suspect]
     Active Substance: PIMAVANSERIN TARTRATE
     Indication: PARKINSON^S DISEASE PSYCHOSIS
     Dosage: 34 MG, QD IN MORNING
     Route: 065
     Dates: start: 201808, end: 20180809

REACTIONS (9)
  - Confusional state [Unknown]
  - Gait disturbance [Unknown]
  - Inappropriate schedule of drug administration [Unknown]
  - Toe walking [Unknown]
  - Overdose [Unknown]
  - Electrocardiogram abnormal [Recovered/Resolved]
  - Hallucination, visual [Unknown]
  - Posture abnormal [Unknown]
  - Underdose [Unknown]

NARRATIVE: CASE EVENT DATE: 201808
